FAERS Safety Report 14748143 (Version 1)
Quarter: 2018Q2

REPORT INFORMATION
  Report Type: Spontaneous
  Country: DE (occurrence: DE)
  Receive Date: 20180411
  Receipt Date: 20180411
  Transmission Date: 20180711
  Serious: Yes (Hospitalization, Other)
  Sender: FDA-Public Use
  Company Number: DE-BRISTOL-MYERS SQUIBB COMPANY-BMS-2018-026532

PATIENT
  Age: 84 Year
  Sex: Male

DRUGS (1)
  1. ELIQUIS [Suspect]
     Active Substance: APIXABAN
     Indication: PRODUCT USED FOR UNKNOWN INDICATION
     Dosage: 2.5 MG, BID
     Route: 065

REACTIONS (8)
  - Cardiac disorder [Unknown]
  - Lung disorder [Unknown]
  - Off label use [Unknown]
  - Weight increased [Unknown]
  - Diabetes mellitus [Unknown]
  - Neoplasm malignant [Unknown]
  - Tooth disorder [Unknown]
  - Renal disorder [Unknown]
